FAERS Safety Report 7552567-2 (Version None)
Quarter: 2011Q2

REPORT INFORMATION
  Report Type: 
  Country: None (occurrence: None)
  Receive Date: 20110616
  Receipt Date: 20110607
  Transmission Date: 20111010
  Serious: Yes (Death, Hospitalization, Other)
  Sender: FDA-Public Use
  Company Number: GB-GENZYME-CLOF-1001341

PATIENT
  Sex: Male
  Weight: 61.6 kg

DRUGS (6)
  1. CHLORPHENIRAMINE MALEATE [Concomitant]
     Indication: RASH
     Dosage: 4 MG, PRN
     Route: 048
     Dates: start: 20090613
  2. DAUNOXOME [Suspect]
     Indication: ACUTE MYELOID LEUKAEMIA
     Dosage: 108 MG, QOD
     Route: 042
     Dates: start: 20090608, end: 20090612
  3. EVOLTRA [Suspect]
     Indication: ACUTE MYELOID LEUKAEMIA
     Dosage: 54 MG, UNK
     Route: 042
     Dates: start: 20090608, end: 20090612
  4. CIPROFLOXACIN [Concomitant]
     Indication: PROPHYLAXIS
     Dosage: 250 MG, UNK
     Route: 048
     Dates: start: 20090607
  5. PLATELETS [Concomitant]
     Indication: PRODUCT USED FOR UNKNOWN INDICATION
     Dosage: UNK
     Route: 065
     Dates: start: 20091027, end: 20091027
  6. COTRIM [Concomitant]
     Indication: PROPHYLAXIS
     Dosage: 480 MG, UNK
     Route: 048
     Dates: start: 20090607

REACTIONS (5)
  - ACUTE MYELOID LEUKAEMIA [None]
  - NEUTROPENIA [None]
  - STREPTOCOCCAL INFECTION [None]
  - PYREXIA [None]
  - UPPER RESPIRATORY FUNGAL INFECTION [None]
